FAERS Safety Report 5837516-7 (Version None)
Quarter: 2008Q3

REPORT INFORMATION
  Report Type: 
  Country: None (occurrence: None)
  Receive Date: 20080807
  Receipt Date: 20080729
  Transmission Date: 20090109
  Serious: Yes (Congenital Anomaly, Other)
  Sender: FDA-Public Use
  Company Number: US-PFIZER INC-2008049931

PATIENT
  Sex: Female

DRUGS (4)
  1. ZOLOFT [Suspect]
     Indication: GENERALISED ANXIETY DISORDER
  2. VISTARIL [Concomitant]
     Indication: ANXIETY
  3. VITAMIN TAB [Concomitant]
  4. WELLBUTRIN XL [Concomitant]

REACTIONS (7)
  - ATRIAL SEPTAL DEFECT [None]
  - DRUG EXPOSURE DURING PREGNANCY [None]
  - GASTROOESOPHAGEAL REFLUX DISEASE [None]
  - JAUNDICE [None]
  - LETHARGY [None]
  - PULMONARY VALVE STENOSIS [None]
  - UNRESPONSIVE TO STIMULI [None]
